FAERS Safety Report 13634058 (Version 1)
Quarter: 2017Q2

REPORT INFORMATION
  Report Type: Spontaneous
  Country: US (occurrence: US)
  Receive Date: 20170531
  Receipt Date: 20170531
  Transmission Date: 20170830
  Serious: No
  Sender: FDA-Public Use
  Company Number: US-ASTELLAS-1600637

PATIENT
  Sex: Female

DRUGS (20)
  1. SURFAK (UNITED STATES) [Concomitant]
  2. PEPCID [Concomitant]
     Active Substance: FAMOTIDINE
  3. DIPHENHYDRAMINE HCL [Concomitant]
     Active Substance: DIPHENHYDRAMINE HYDROCHLORIDE
  4. TARCEVA [Suspect]
     Active Substance: ERLOTINIB HYDROCHLORIDE
     Indication: LUNG NEOPLASM MALIGNANT
     Route: 048
     Dates: start: 20150606
  5. LASIX [Concomitant]
     Active Substance: FUROSEMIDE
  6. COLACE [Concomitant]
     Active Substance: DOCUSATE SODIUM
  7. PACLITAXEL. [Concomitant]
     Active Substance: PACLITAXEL
  8. ASPIRIN. [Concomitant]
     Active Substance: ASPIRIN
  9. ACETAMINOPHEN. [Concomitant]
     Active Substance: ACETAMINOPHEN
  10. ONDANSETRON HCL [Concomitant]
     Active Substance: ONDANSETRON HYDROCHLORIDE
  11. SPIRONOLACTONE. [Concomitant]
     Active Substance: SPIRONOLACTONE
  12. HYDROMET (UNITED STATES) [Concomitant]
  13. FLUTICASONE. [Concomitant]
     Active Substance: FLUTICASONE
  14. ROBINUL [Concomitant]
     Active Substance: GLYCOPYRROLATE
  15. POTASSIUM CHLORIDE. [Concomitant]
     Active Substance: POTASSIUM CHLORIDE
     Route: 065
  16. FAMOTIDINE. [Concomitant]
     Active Substance: FAMOTIDINE
  17. AUGMENTIN [Concomitant]
     Active Substance: AMOXICILLIN\CLAVULANATE POTASSIUM
  18. PROPIONATE (UNK INGREDIENTS) [Concomitant]
  19. DIAZEPAM. [Concomitant]
     Active Substance: DIAZEPAM
  20. METHYLPREDNISOLONE. [Concomitant]
     Active Substance: METHYLPREDNISOLONE

REACTIONS (2)
  - Dyspepsia [Unknown]
  - Pyrexia [Unknown]
